FAERS Safety Report 10160943 (Version 2)
Quarter: 2014Q2

REPORT INFORMATION
  Report Type: Spontaneous
  Country: AU (occurrence: AU)
  Receive Date: 20140508
  Receipt Date: 20140508
  Transmission Date: 20141212
  Serious: Yes (Hospitalization)
  Sender: FDA-Public Use
  Company Number: AU-B.I. PHARMACEUTICALS,INC./RIDGEFIELD-2014-BI-19327AU

PATIENT
  Age: 81 Year
  Sex: Male
  Weight: 88 kg

DRUGS (11)
  1. PRADAXA [Suspect]
     Indication: ATRIAL FIBRILLATION
     Dosage: 220 MG
     Route: 065
     Dates: start: 2010, end: 20140422
  2. PRADAXA [Suspect]
     Dosage: 110 MG
     Route: 065
     Dates: start: 20140429
  3. PRADAXA [Suspect]
     Dosage: 220 MG
     Route: 065
     Dates: start: 20140506
  4. ASPIRIN [Concomitant]
     Indication: ANGIOPATHY
     Route: 065
  5. MINIPRESS [Concomitant]
     Route: 065
  6. ATACAND PLUS [Concomitant]
     Dosage: DOSE PER APPLICATION: 32
     Route: 065
  7. SOTACOR [Concomitant]
     Dosage: 160 MG
     Route: 065
  8. ZANIDIP [Concomitant]
     Route: 065
  9. DIAMICRON MR [Concomitant]
     Dosage: DOSE PER APPLICATION : 60
     Route: 065
  10. LANOXIN PG [Concomitant]
     Route: 065
  11. PANTOPRAZOLE [Concomitant]
     Dosage: DOSE PER APPLICATION: 40
     Route: 065

REACTIONS (6)
  - Gastrointestinal haemorrhage [Unknown]
  - Faeces discoloured [Unknown]
  - Thrombosis [Recovered/Resolved]
  - Rectal haemorrhage [Recovered/Resolved]
  - Polyp [Unknown]
  - Therapy change [Unknown]
